FAERS Safety Report 4283311-2 (Version None)
Quarter: 2004Q1

REPORT INFORMATION
  Report Type: 
  Country: None (occurrence: None)
  Receive Date: 20040129
  Receipt Date: 20040116
  Transmission Date: 20041129
  Serious: Yes (Hospitalization)
  Sender: FDA-Public Use
  Company Number: 2003113548

PATIENT
  Age: 72 Year
  Sex: Female
  Weight: 62 kg

DRUGS (7)
  1. SERTRALINE HCL [Suspect]
     Indication: DEPRESSION
     Dosage: 200 MG, ORAL
     Route: 048
     Dates: start: 20030801, end: 20031001
  2. NEATENOL DIU (BENDROFLUMETHIAZIDE, ATENOLOL) [Concomitant]
  3. ALL OTHER THERAPEUTIC PRODUCTS [Concomitant]
  4. PAROXETINE HCL [Concomitant]
  5. ALPRAZOLAM [Concomitant]
  6. PANTOPRAZOLE (PANTOPRAZOLE) [Concomitant]
  7. IRBESARTAN [Concomitant]

REACTIONS (3)
  - HYPOCHLORAEMIA [None]
  - HYPOKALAEMIA [None]
  - HYPONATRAEMIA [None]
